FAERS Safety Report 9665168 (Version 1)
Quarter: 2013Q4

REPORT INFORMATION
  Report Type: Spontaneous
  Country: US (occurrence: US)
  Receive Date: 20131103
  Receipt Date: 20131103
  Transmission Date: 20140711
  Serious: Yes (Hospitalization)
  Sender: FDA-Public Use
  Company Number: US-MYLANLABS-2013S1023812

PATIENT
  Age: 16 Year
  Sex: Female

DRUGS (3)
  1. ESCITALOPRAM [Suspect]
     Indication: OVERDOSE
     Dosage: DF = 10MG
     Route: 048
  2. PARACETAMOL W/TRAMADOL HYDROCHLORIDE [Suspect]
     Indication: OVERDOSE
     Route: 048
  3. PROCET /01554201/ [Suspect]
     Indication: OVERDOSE
     Dosage: UNKNOWN AMOUNT
     Route: 048

REACTIONS (4)
  - Overdose [Recovered/Resolved]
  - Electrocardiogram QRS complex prolonged [Recovered/Resolved]
  - Electrocardiogram QT prolonged [Recovered/Resolved]
  - Bundle branch block right [Recovered/Resolved]
